FAERS Safety Report 9321973 (Version 1)
Quarter: 2013Q2

REPORT INFORMATION
  Report Type: Spontaneous
  Country: BR (occurrence: BR)
  Receive Date: 20130531
  Receipt Date: 20130531
  Transmission Date: 20140414
  Serious: Yes (Hospitalization)
  Sender: FDA-Public Use
  Company Number: BR-ABBOTT-13P-020-1096394-00

PATIENT
  Age: 50 Year
  Sex: Male
  Weight: 70 kg

DRUGS (15)
  1. HUMIRA [Suspect]
     Indication: ANKYLOSING SPONDYLITIS
     Route: 058
     Dates: start: 20120516
  2. METHOTREXATE [Concomitant]
     Indication: ANKYLOSING SPONDYLITIS
     Route: 048
     Dates: start: 2005
  3. CODATEN [Concomitant]
     Indication: PAIN
     Route: 048
     Dates: start: 2005
  4. NAPROXEN [Concomitant]
     Indication: PAIN
     Route: 048
     Dates: start: 2005
  5. MIRTAZAPINE [Concomitant]
     Indication: RELAXATION THERAPY
     Route: 048
     Dates: start: 1998
  6. DIGOXIN [Concomitant]
     Indication: CARDIAC DISORDER
     Route: 048
     Dates: start: 1998
  7. OMEPRAZOLE [Concomitant]
     Indication: GASTRIC DISORDER
     Route: 048
     Dates: start: 1998
  8. GEROVITAL [Concomitant]
     Indication: ASTHENIA
     Route: 048
     Dates: start: 2003
  9. CALCIUM [Concomitant]
     Indication: BONE DISORDER
     Route: 048
     Dates: start: 2005
  10. OFTPRED [Concomitant]
     Indication: UVEITIS
     Dosage: FORM OF ADMINISTRATION: DROPS (EVENTUALLY)
     Route: 050
     Dates: start: 2010
  11. CROMOGLYCATE [Concomitant]
     Indication: UVEITIS
     Dosage: FORM OF ADMINISTRATION: DROPS
     Route: 050
     Dates: start: 2006
  12. DIAMOX [Concomitant]
     Indication: INTRAOCULAR PRESSURE TEST ABNORMAL
     Dosage: EVENTUALLY
     Route: 048
     Dates: start: 2010
  13. UNKNOWN DRUG [Concomitant]
     Indication: UVEITIS
     Dosage: FORM OF ADMINISTRATION: DROPS
     Route: 050
     Dates: start: 2009
  14. NEPODEX [Concomitant]
     Indication: UVEITIS
     Route: 050
     Dates: start: 2010
  15. DORFLEX [Concomitant]
     Indication: BONE DISORDER
     Route: 048
     Dates: start: 201304

REACTIONS (9)
  - Feeling abnormal [Unknown]
  - Local swelling [Recovered/Resolved]
  - Back pain [Recovered/Resolved]
  - Abdominal distension [Recovered/Resolved]
  - Pain [Recovered/Resolved]
  - Hypertension [Recovered/Resolved]
  - Hepatic steatosis [Unknown]
  - Accidental exposure to product [Unknown]
  - Arthralgia [Unknown]
